FAERS Safety Report 16284351 (Version 2)
Quarter: 2019Q4

REPORT INFORMATION
  Report Type: Report from Study
  Country: None (occurrence: ES)
  Receive Date: 20190508
  Receipt Date: 20191119
  Transmission Date: 20200122
  Serious: Yes (Hospitalization, Other)
  Sender: FDA-Public Use
  Company Number: ES-ABBVIE-19S-144-2773044-00

PATIENT
  Sex: Male
  Weight: 70 kg

DRUGS (2)
  1. ZINNAT [Concomitant]
     Active Substance: CEFUROXIME
     Indication: PROPHYLAXIS
     Route: 048
     Dates: start: 20190426, end: 20190501
  2. DUODOPA [Suspect]
     Active Substance: CARBIDOPA\LEVODOPA
     Indication: PARKINSON^S DISEASE
     Route: 050
     Dates: start: 20180917

REACTIONS (1)
  - Bladder cancer recurrent [Unknown]

NARRATIVE: CASE EVENT DATE: 2019
